FAERS Safety Report 6017004-8 (Version None)
Quarter: 2008Q4

REPORT INFORMATION
  Report Type: 
  Country: None (occurrence: None)
  Receive Date: 20081223
  Receipt Date: 20081210
  Transmission Date: 20090506
  Serious: Yes (Other)
  Sender: FDA-Public Use
  Company Number: US-ROCHE-602438

PATIENT
  Sex: Male

DRUGS (2)
  1. PEGASYS [Suspect]
     Route: 065
  2. RIBASPHERE [Suspect]
     Dosage: FORM REPORTED AS: PILL.
     Route: 065

REACTIONS (1)
  - PARANOIA [None]
